FAERS Safety Report 5109213-7 (Version None)
Quarter: 2006Q3

REPORT INFORMATION
  Report Type: 
  Country: None (occurrence: None)
  Receive Date: 20060920
  Receipt Date: 20060912
  Transmission Date: 20061208
  Serious: Yes (Hospitalization)
  Sender: FDA-Public Use
  Company Number: JP-BRISTOL-MYERS SQUIBB COMPANY-13509575

PATIENT
  Age: 32 Year
  Sex: Male

DRUGS (2)
  1. TAXOL [Suspect]
     Indication: THYMOMA
     Route: 041
  2. PARAPLATIN [Suspect]
     Indication: THYMOMA
     Route: 041

REACTIONS (1)
  - LOSS OF CONSCIOUSNESS [None]
